FAERS Safety Report 5477057-2 (Version None)
Quarter: 2007Q4

REPORT INFORMATION
  Report Type: 
  Country: None (occurrence: None)
  Receive Date: 20071002
  Receipt Date: 20071002
  Transmission Date: 20080405
  Serious: Yes (Life-Threatening, Hospitalization, Disabling, Other)
  Sender: FDA-Public Use
  Company Number: None

PATIENT
  Age: 57 Year
  Sex: Male
  Weight: 107.9561 kg

DRUGS (1)
  1. MOBIC [Suspect]
     Indication: INTERVERTEBRAL DISC PROTRUSION
     Dosage: 20MG TWICE DAILY
     Dates: start: 20070201, end: 20070221

REACTIONS (4)
  - PHARYNGITIS STREPTOCOCCAL [None]
  - SCAR [None]
  - STEVENS-JOHNSON SYNDROME [None]
  - TOXIC EPIDERMAL NECROLYSIS [None]
